FAERS Safety Report 9133100 (Version 1)
Quarter: 2013Q1

REPORT INFORMATION
  Report Type: Spontaneous
  Country: US (occurrence: US)
  Receive Date: 20130128
  Receipt Date: 20130128
  Transmission Date: 20140127
  Serious: No
  Sender: FDA-Public Use
  Company Number: US-PFIZER INC-2013030142

PATIENT
  Age: 75 Year
  Sex: Male
  Weight: 65.76 kg

DRUGS (2)
  1. SUTENT [Suspect]
     Indication: RENAL CELL CARCINOMA
     Dosage: 50MG (12.5 MG X 4), UNK
  2. DIOVAN [Concomitant]
     Dosage: UNK

REACTIONS (3)
  - Nausea [Unknown]
  - Fatigue [Unknown]
  - Asthenia [Unknown]
